FAERS Safety Report 23096693 (Version 1)
Quarter: 2023Q4

REPORT INFORMATION
  Report Type: Spontaneous
  Country: CN (occurrence: CN)
  Receive Date: 20231023
  Receipt Date: 20231023
  Transmission Date: 20240110
  Serious: Yes (Life-Threatening, Other)
  Sender: FDA-Public Use
  Company Number: CN-PFIZER INC-PV202300170298

PATIENT
  Age: 3 Year
  Sex: Female

DRUGS (8)
  1. IRINOTECAN HYDROCHLORIDE [Suspect]
     Active Substance: IRINOTECAN HYDROCHLORIDE
     Indication: Neuroblastoma
     Dosage: 65 MG, DAYS 1-3
     Dates: start: 20210912
  2. CYCLOPHOSPHAMIDE [Suspect]
     Active Substance: CYCLOPHOSPHAMIDE
     Indication: Neuroblastoma
     Dosage: 0.22 G, DAYS 1-5
     Dates: start: 20210912
  3. ETOPOSIDE [Suspect]
     Active Substance: ETOPOSIDE
     Indication: Neuroblastoma
     Dosage: 0.115 G, DAYS 1-3
     Dates: start: 20211104
  4. ETOPOSIDE [Suspect]
     Active Substance: ETOPOSIDE
     Dosage: 0.1 G, DAYS 1-3
     Dates: start: 20211201
  5. ETOPOSIDE [Suspect]
     Active Substance: ETOPOSIDE
     Dosage: 0.1 G, DAYS 1-3
     Dates: start: 20211229
  6. CISPLATIN [Suspect]
     Active Substance: CISPLATIN
     Indication: Neuroblastoma
     Dosage: 28 MG, DAYS 1-4
     Dates: start: 20211104
  7. NEDAPLATIN [Suspect]
     Active Substance: NEDAPLATIN
     Indication: Neuroblastoma
     Dosage: 30 MG, DAYS 1-3
     Dates: start: 20211201
  8. NEDAPLATIN [Suspect]
     Active Substance: NEDAPLATIN
     Dosage: 30 MG, DAYS 1-3
     Dates: start: 20211229

REACTIONS (3)
  - Cardiac failure [Recovering/Resolving]
  - Myelosuppression [Recovering/Resolving]
  - Off label use [Unknown]

NARRATIVE: CASE EVENT DATE: 20211101
